FAERS Safety Report 10343686 (Version 1)
Quarter: 2014Q3

REPORT INFORMATION
  Report Type: Spontaneous
  Country: DE (occurrence: DE)
  Receive Date: 20140725
  Receipt Date: 20140725
  Transmission Date: 20150326
  Serious: Yes (Other)
  Sender: FDA-Public Use
  Company Number: DE-BIOMARINAP-DE-2014-103751

PATIENT
  Age: 34 Year
  Sex: Female

DRUGS (1)
  1. ALDURAZYME [Suspect]
     Active Substance: LARONIDASE
     Indication: MUCOPOLYSACCHARIDOSIS I
     Dosage: UNK, QW
     Route: 041
     Dates: start: 2011

REACTIONS (7)
  - Procedural pain [Unknown]
  - Movement disorder [Unknown]
  - Spinal column stenosis [Unknown]
  - Heart valve replacement [Unknown]
  - Ovarian cyst [Unknown]
  - Back pain [Unknown]
  - Reflexes abnormal [Unknown]

NARRATIVE: CASE EVENT DATE: 201112
